FAERS Safety Report 17297622 (Version 1)
Quarter: 2020Q1

REPORT INFORMATION
  Report Type: Report from Study
  Country: CO (occurrence: CO)
  Receive Date: 20200122
  Receipt Date: 20200122
  Transmission Date: 20200409
  Serious: Yes (Hospitalization, Disabling, Other)
  Sender: FDA-Public Use
  Company Number: CO-ROCHE-2518226

PATIENT
  Age: 77 Year
  Sex: Female

DRUGS (1)
  1. ACTEMRA [Suspect]
     Active Substance: TOCILIZUMAB
     Indication: RHEUMATOID ARTHRITIS
     Route: 042
     Dates: start: 20160330, end: 20160628

REACTIONS (5)
  - White blood cell count decreased [Recovered/Resolved]
  - Immunosuppression [Unknown]
  - Diarrhoea [Recovered/Resolved]
  - Inflammation [Unknown]
  - Neoplasm [Unknown]

NARRATIVE: CASE EVENT DATE: 201607
